FAERS Safety Report 9222314 (Version 2)
Quarter: 2013Q2

REPORT INFORMATION
  Report Type: Spontaneous
  Country: ES (occurrence: ES)
  Receive Date: 20130410
  Receipt Date: 20130419
  Transmission Date: 20140414
  Serious: Yes (Other)
  Sender: FDA-Public Use
  Company Number: ES-SANOFI-AVENTIS-2013SA035349

PATIENT
  Age: 69 Year
  Sex: Female

DRUGS (4)
  1. CLEXANE [Suspect]
     Indication: THROMBOSIS PROPHYLAXIS
     Dosage: 20MG
     Route: 042
     Dates: start: 20120912, end: 20120920
  2. DAPTOMYCIN [Suspect]
     Indication: PRODUCT USED FOR UNKNOWN INDICATION
     Dosage: 300MG
     Route: 042
     Dates: start: 20120912, end: 20120920
  3. AMIKACIN [Concomitant]
     Dosage: 800MG
     Route: 042
     Dates: start: 20120912
  4. PANTOPRAZOLE [Concomitant]
     Indication: PROPHYLAXIS AGAINST GASTROINTESTINAL ULCER
     Dosage: 40MG
     Route: 048
     Dates: start: 20120912

REACTIONS (1)
  - Hepatitis cholestatic [Recovered/Resolved]
